FAERS Safety Report 9905961 (Version 2)
Quarter: 2014Q2

REPORT INFORMATION
  Report Type: Spontaneous
  Country: US (occurrence: US)
  Receive Date: 20140218
  Receipt Date: 20140501
  Transmission Date: 20141212
  Serious: Yes (Life-Threatening, Other)
  Sender: FDA-Public Use
  Company Number: US-ABBVIE-14P-163-1202643-00

PATIENT
  Age: 61 Year
  Sex: Male

DRUGS (1)
  1. ANDROGEL [Suspect]
     Indication: BLOOD TESTOSTERONE DECREASED
     Dates: end: 201309

REACTIONS (17)
  - Physical disability [Unknown]
  - Emotional disorder [Unknown]
  - Pain [Unknown]
  - Anxiety [Unknown]
  - Injury [Unknown]
  - Pain [Unknown]
  - Disability [Unknown]
  - Thrombosis [Unknown]
  - Pulmonary thrombosis [Unknown]
  - Economic problem [Unknown]
  - Economic problem [Unknown]
  - Loss of employment [Unknown]
  - Unevaluable event [Unknown]
  - Economic problem [Unknown]
  - Unevaluable event [Unknown]
  - Loss of employment [Unknown]
  - Marital problem [Unknown]
